FAERS Safety Report 8450805 (Version 4)
Quarter: 2013Q2

REPORT INFORMATION
  Report Type: Spontaneous
  Country: FR (occurrence: FR)
  Receive Date: 20120309
  Receipt Date: 20130619
  Transmission Date: 20140414
  Serious: Yes (Other)
  Sender: FDA-Public Use
  Company Number: FR-BRISTOL-MYERS SQUIBB COMPANY-16429276

PATIENT
  Age: 51 Year
  Sex: Male

DRUGS (3)
  1. REYATAZ [Suspect]
     Indication: HIV INFECTION
     Route: 048
     Dates: start: 200711, end: 20120213
  2. KIVEXA [Suspect]
  3. NORVIR [Suspect]
     Dates: start: 200711

REACTIONS (3)
  - Renal colic [Recovered/Resolved]
  - Nephrolithiasis [Unknown]
  - Hypercholesterolaemia [Unknown]
